FAERS Safety Report 16893362 (Version 2)
Quarter: 2020Q2

REPORT INFORMATION
  Report Type: Spontaneous
  Country: US (occurrence: US)
  Receive Date: 20191008
  Receipt Date: 20200605
  Transmission Date: 20200713
  Serious: Yes (Death, Other)
  Sender: FDA-Public Use
  Company Number: US-ASTRAZENECA-2019SF41601

PATIENT
  Age: 21153 Day
  Sex: Male
  Weight: 87.8 kg

DRUGS (35)
  1. VICTOZA [Suspect]
     Active Substance: LIRAGLUTIDE
     Indication: DIABETES MELLITUS
     Route: 065
     Dates: start: 20170802, end: 201802
  2. VICTOZA [Suspect]
     Active Substance: LIRAGLUTIDE
     Indication: DIABETES MELLITUS
     Dosage: 18 MG/3 ML PEN
     Route: 065
     Dates: start: 20120221
  3. JANUVIA [Concomitant]
     Active Substance: SITAGLIPTIN PHOSPHATE
  4. OXYCODONE [Concomitant]
     Active Substance: OXYCODONE
  5. ARIPIPRAZOLE. [Concomitant]
     Active Substance: ARIPIPRAZOLE
  6. OMEPRAZOLE. [Concomitant]
     Active Substance: OMEPRAZOLE
  7. OSELTAMIVIR PHOSPHATE. [Concomitant]
     Active Substance: OSELTAMIVIR PHOSPHATE
  8. CRESTOR [Concomitant]
     Active Substance: ROSUVASTATIN CALCIUM
  9. RISPERIDONE. [Concomitant]
     Active Substance: RISPERIDONE
  10. METFORMIN [Concomitant]
     Active Substance: METFORMIN HYDROCHLORIDE
  11. CYCLOBENZAPRINE. [Concomitant]
     Active Substance: CYCLOBENZAPRINE
  12. HYDROCODONE [Concomitant]
     Active Substance: HYDROCODONE
  13. VICTOZA [Suspect]
     Active Substance: LIRAGLUTIDE
     Indication: DIABETES MELLITUS
     Dosage: EVERY MORNING
     Route: 065
     Dates: start: 20120220
  14. MELOXICAM. [Concomitant]
     Active Substance: MELOXICAM
  15. AMOXICILLIN. [Concomitant]
     Active Substance: AMOXICILLIN
  16. JARDIANCE [Concomitant]
     Active Substance: EMPAGLIFLOZIN
  17. NEXIUM [Concomitant]
     Active Substance: ESOMEPRAZOLE MAGNESIUM
  18. VICTOZA [Suspect]
     Active Substance: LIRAGLUTIDE
     Indication: DIABETES MELLITUS
     Route: 065
     Dates: start: 201202, end: 201805
  19. VICTOZA [Suspect]
     Active Substance: LIRAGLUTIDE
     Indication: DIABETES MELLITUS
     Route: 065
     Dates: start: 20120221, end: 201401
  20. TIZANIDINE. [Concomitant]
     Active Substance: TIZANIDINE
  21. AMITRIPTYLINE [Concomitant]
     Active Substance: AMITRIPTYLINE
  22. BYETTA [Suspect]
     Active Substance: EXENATIDE
     Indication: DIABETES MELLITUS
     Dosage: TWICE DAILY
     Route: 065
     Dates: start: 20110407, end: 201109
  23. PIOGLITAZONE. [Concomitant]
     Active Substance: PIOGLITAZONE
  24. CLINDAMYCIN. [Concomitant]
     Active Substance: CLINDAMYCIN
  25. NUCYNTA [Concomitant]
     Active Substance: TAPENTADOL HYDROCHLORIDE
  26. BYETTA [Suspect]
     Active Substance: EXENATIDE
     Indication: DIABETES MELLITUS
     Route: 065
     Dates: start: 201104, end: 201109
  27. LORAZEPAM. [Concomitant]
     Active Substance: LORAZEPAM
  28. PRAVASTATIN SODIUM. [Concomitant]
     Active Substance: PRAVASTATIN SODIUM
  29. LEVOFLOXACIN. [Concomitant]
     Active Substance: LEVOFLOXACIN
  30. PRILOSEC [Concomitant]
     Active Substance: OMEPRAZOLE MAGNESIUM
  31. DULOXETINE. [Concomitant]
     Active Substance: DULOXETINE
  32. FLUARIX NOS [Concomitant]
     Active Substance: INFLUENZA VIRUS VACCINE
  33. PREDNISONE. [Concomitant]
     Active Substance: PREDNISONE
  34. EFFEXOR [Concomitant]
     Active Substance: VENLAFAXINE HYDROCHLORIDE
  35. VIAGRA [Concomitant]
     Active Substance: SILDENAFIL CITRATE

REACTIONS (6)
  - Metastases to pancreas [Fatal]
  - Pancreatic carcinoma [Fatal]
  - Lymphadenopathy [Unknown]
  - Metastases to liver [Fatal]
  - Neuroendocrine carcinoma of the skin [Fatal]
  - Metastases to peritoneum [Unknown]

NARRATIVE: CASE EVENT DATE: 20160315
